FAERS Safety Report 25435748 (Version 1)
Quarter: 2025Q2

REPORT INFORMATION
  Report Type: Spontaneous
  Country: FR (occurrence: FR)
  Receive Date: 20250613
  Receipt Date: 20250613
  Transmission Date: 20250716
  Serious: Yes (Other)
  Sender: MYLAN
  Company Number: None

PATIENT
  Age: 63 Year
  Sex: Female
  Weight: 80 kg

DRUGS (24)
  1. METFORMIN [Suspect]
     Active Substance: METFORMIN HYDROCHLORIDE
     Indication: Type 2 diabetes mellitus
  2. METFORMIN [Suspect]
     Active Substance: METFORMIN HYDROCHLORIDE
     Route: 048
  3. METFORMIN [Suspect]
     Active Substance: METFORMIN HYDROCHLORIDE
     Route: 048
  4. METFORMIN [Suspect]
     Active Substance: METFORMIN HYDROCHLORIDE
  5. EXEMESTANE [Suspect]
     Active Substance: EXEMESTANE
     Indication: Breast cancer
  6. EXEMESTANE [Suspect]
     Active Substance: EXEMESTANE
     Route: 048
  7. EXEMESTANE [Suspect]
     Active Substance: EXEMESTANE
     Route: 048
  8. EXEMESTANE [Suspect]
     Active Substance: EXEMESTANE
  9. LETROZOLE [Suspect]
     Active Substance: LETROZOLE
     Indication: Breast cancer
     Dates: start: 20230209, end: 20230730
  10. LETROZOLE [Suspect]
     Active Substance: LETROZOLE
     Route: 048
     Dates: start: 20230209, end: 20230730
  11. LETROZOLE [Suspect]
     Active Substance: LETROZOLE
     Route: 048
     Dates: start: 20230209, end: 20230730
  12. LETROZOLE [Suspect]
     Active Substance: LETROZOLE
     Dates: start: 20230209, end: 20230730
  13. ANASTROZOLE [Suspect]
     Active Substance: ANASTROZOLE
     Indication: Breast cancer
     Dates: start: 20230731, end: 20240118
  14. ANASTROZOLE [Suspect]
     Active Substance: ANASTROZOLE
     Route: 048
     Dates: start: 20230731, end: 20240118
  15. ANASTROZOLE [Suspect]
     Active Substance: ANASTROZOLE
     Route: 048
     Dates: start: 20230731, end: 20240118
  16. ANASTROZOLE [Suspect]
     Active Substance: ANASTROZOLE
     Dates: start: 20230731, end: 20240118
  17. LEVOTHYROXINE [Suspect]
     Active Substance: LEVOTHYROXINE
     Indication: Thyroidectomy
  18. LEVOTHYROXINE [Suspect]
     Active Substance: LEVOTHYROXINE
     Route: 048
  19. LEVOTHYROXINE [Suspect]
     Active Substance: LEVOTHYROXINE
     Route: 048
  20. LEVOTHYROXINE [Suspect]
     Active Substance: LEVOTHYROXINE
  21. LIPTRUZET [Suspect]
     Active Substance: ATORVASTATIN CALCIUM\EZETIMIBE
     Indication: Dyslipidaemia
  22. LIPTRUZET [Suspect]
     Active Substance: ATORVASTATIN CALCIUM\EZETIMIBE
     Route: 048
  23. LIPTRUZET [Suspect]
     Active Substance: ATORVASTATIN CALCIUM\EZETIMIBE
     Route: 048
  24. LIPTRUZET [Suspect]
     Active Substance: ATORVASTATIN CALCIUM\EZETIMIBE

REACTIONS (2)
  - Tooth extraction [Recovered/Resolved with Sequelae]
  - Gingival recession [Recovered/Resolved with Sequelae]

NARRATIVE: CASE EVENT DATE: 20240101
